FAERS Safety Report 15158999 (Version 1)
Quarter: 2018Q3

REPORT INFORMATION
  Report Type: Spontaneous
  Country: FR (occurrence: FR)
  Receive Date: 20180718
  Receipt Date: 20180718
  Transmission Date: 20181010
  Serious: Yes (Life-Threatening)
  Sender: FDA-Public Use
  Company Number: FR-PFIZER INC-2018285355

PATIENT
  Age: 25 Year
  Sex: Female
  Weight: 52 kg

DRUGS (9)
  1. FASTURTEC [Concomitant]
     Active Substance: RASBURICASE
     Dosage: UNK
     Route: 042
     Dates: start: 20180608
  2. VESANOID [Concomitant]
     Active Substance: TRETINOIN
     Indication: ACUTE MYELOID LEUKAEMIA
     Dosage: 80 MG, 1X/DAY
     Route: 048
     Dates: start: 20180607
  3. HYDREA [Concomitant]
     Active Substance: HYDROXYUREA
     Dosage: UNK
     Route: 048
     Dates: start: 20180607, end: 20180609
  4. CYTARABINE ACCORD [Concomitant]
     Active Substance: CYTARABINE
     Indication: ACUTE MYELOID LEUKAEMIA
     Dosage: 320 MG, 1X/DAY
     Route: 042
     Dates: start: 20180608, end: 20180614
  5. DEXAMETHASONE. [Concomitant]
     Active Substance: DEXAMETHASONE
     Dosage: 20 MG, 1X/DAY
     Route: 048
     Dates: start: 20180608
  6. ZAVEDOS [Suspect]
     Active Substance: IDARUBICIN
     Indication: ACUTE MYELOID LEUKAEMIA
     Dosage: 19 MG, ALTERNATE DAY
     Route: 042
     Dates: start: 20180608, end: 20180610
  7. STROMECTOL [Concomitant]
     Active Substance: IVERMECTIN
     Dosage: 4 DF, SINGLE
     Route: 048
     Dates: start: 20180608
  8. FLUVERMAL [Concomitant]
     Dosage: 2 DF, 1X/DAY
     Route: 048
     Dates: start: 20180608, end: 20180610
  9. FASIGYNE [Concomitant]
     Dosage: 4 DF, SINGLE
     Route: 048
     Dates: start: 20180608

REACTIONS (1)
  - Myocarditis [Recovered/Resolved]

NARRATIVE: CASE EVENT DATE: 20180611
